FAERS Safety Report 16143726 (Version 2)
Quarter: 2019Q2

REPORT INFORMATION
  Report Type: Spontaneous
  Country: CA (occurrence: CA)
  Receive Date: 20190401
  Receipt Date: 20190418
  Transmission Date: 20190711
  Serious: Yes (Other)
  Sender: FDA-Public Use
  Company Number: CA-PFIZER INC-2019130992

PATIENT
  Age: 38 Year
  Sex: Female

DRUGS (8)
  1. EFFEXOR XR [Concomitant]
     Active Substance: VENLAFAXINE HYDROCHLORIDE
     Dosage: 75 MG, UNK
     Dates: start: 20041013
  2. PMS-TOBRAMYCIN [Concomitant]
     Dosage: 0.3 %, INSTILL 1 TO 2 DROPS INTO AFFECTED EYE(S)  4X/DAY
     Route: 047
     Dates: start: 20040714
  3. DEPO-PROVERA [Suspect]
     Active Substance: MEDROXYPROGESTERONE ACETATE
     Dosage: 150 MG/ML
     Dates: start: 20020521
  4. TOBREX [Concomitant]
     Active Substance: TOBRAMYCIN
     Dosage: 0.3 %, UNK
     Route: 047
     Dates: start: 20040714
  5. DEPO-PROVERA [Suspect]
     Active Substance: MEDROXYPROGESTERONE ACETATE
     Dosage: 150 MG/ML
     Dates: start: 20060912
  6. EFFEXOR XR [Concomitant]
     Active Substance: VENLAFAXINE HYDROCHLORIDE
     Dosage: 75 MG, UNK
     Dates: start: 20040517
  7. DEPO-PROVERA [Suspect]
     Active Substance: MEDROXYPROGESTERONE ACETATE
     Dosage: 150 MG/ML
     Dates: start: 20041220
  8. DEPO-PROVERA [Suspect]
     Active Substance: MEDROXYPROGESTERONE ACETATE
     Dosage: 150 MG/ML
     Dates: start: 20060626

REACTIONS (5)
  - Tibia fracture [Unknown]
  - Femur fracture [Recovered/Resolved]
  - Osteoporosis [Unknown]
  - Osteopenia [Unknown]
  - Exostosis [Not Recovered/Not Resolved]

NARRATIVE: CASE EVENT DATE: 20040112
